FAERS Safety Report 18795607 (Version 1)
Quarter: 2021Q1

REPORT INFORMATION
  Report Type: Spontaneous
  Country: JP (occurrence: JP)
  Receive Date: 20210125
  Receipt Date: 20210125
  Transmission Date: 20210419
  Serious: Yes (Other)
  Sender: FDA-Public Use
  Company Number: NVSJ2021JP000821

PATIENT
  Age: 90 Year
  Sex: Male

DRUGS (3)
  1. BEOVU [Suspect]
     Active Substance: BROLUCIZUMAB-DBLL
     Dosage: 6 MG,  LEFT EYE
     Route: 031
     Dates: start: 20201221, end: 20201221
  2. BEOVU [Suspect]
     Active Substance: BROLUCIZUMAB-DBLL
     Indication: AGE-RELATED MACULAR DEGENERATION
     Dosage: 6 MG
     Route: 031
     Dates: start: 20201116, end: 20201116
  3. BEOVU [Suspect]
     Active Substance: BROLUCIZUMAB-DBLL
     Dosage: 6 MG,  LEFT EYE
     Route: 031
     Dates: start: 20210104, end: 20210104

REACTIONS (3)
  - Anterior chamber cell [Unknown]
  - Anterior chamber inflammation [Recovering/Resolving]
  - Sarcoidosis [Unknown]

NARRATIVE: CASE EVENT DATE: 202012
